FAERS Safety Report 10639799 (Version 2)
Quarter: 2015Q1

REPORT INFORMATION
  Report Type: Spontaneous
  Country: US (occurrence: US)
  Receive Date: 20141209
  Receipt Date: 20150202
  Transmission Date: 20150720
  Serious: No
  Sender: FDA-Public Use
  Company Number: US-ASTRAZENECA-2014SE93758

PATIENT
  Age: 76 Year
  Sex: Male
  Weight: 61 kg

DRUGS (2)
  1. NEXIUM 24HR [Suspect]
     Active Substance: ESOMEPRAZOLE MAGNESIUM
     Indication: GASTROOESOPHAGEAL REFLUX DISEASE
     Route: 048
     Dates: start: 2014, end: 20141127
  2. NEXIUM [Suspect]
     Active Substance: ESOMEPRAZOLE MAGNESIUM
     Route: 048

REACTIONS (12)
  - Mucous stools [Recovered/Resolved]
  - Intentional product misuse [Recovered/Resolved]
  - Feeling abnormal [Recovered/Resolved]
  - Heart rate decreased [Recovered/Resolved]
  - Dizziness [Recovered/Resolved]
  - Diarrhoea [Recovering/Resolving]
  - Muscle spasms [Recovered/Resolved]
  - Flatulence [Unknown]
  - Hyperhidrosis [Recovered/Resolved]
  - Gastrooesophageal reflux disease [Unknown]
  - Abdominal pain [Recovered/Resolved]
  - Abdominal discomfort [Recovered/Resolved]

NARRATIVE: CASE EVENT DATE: 2014
